FAERS Safety Report 17009015 (Version 2)
Quarter: 2019Q4

REPORT INFORMATION
  Report Type: Spontaneous
  Country: CA (occurrence: CA)
  Receive Date: 20191108
  Receipt Date: 20191212
  Transmission Date: 20200122
  Serious: Yes (Other)
  Sender: FDA-Public Use
  Company Number: CA-SA-2019SA307476

PATIENT
  Age: 63 Year
  Sex: Female

DRUGS (1)
  1. DUPIXENT [Suspect]
     Active Substance: DUPILUMAB
     Indication: ECZEMA
     Dosage: UNK
     Dates: start: 201902

REACTIONS (3)
  - Ataxia [Recovering/Resolving]
  - Hypoaesthesia [Recovering/Resolving]
  - Myelitis [Recovering/Resolving]

NARRATIVE: CASE EVENT DATE: 201905
